FAERS Safety Report 14909716 (Version 1)
Quarter: 2018Q2

REPORT INFORMATION
  Report Type: Spontaneous
  Country: US (occurrence: US)
  Receive Date: 20180517
  Receipt Date: 20180517
  Transmission Date: 20180711
  Serious: Yes (Death, Hospitalization, Other)
  Sender: FDA-Public Use
  Company Number: US-GLAXOSMITHKLINE-US2018084287

PATIENT
  Sex: Male

DRUGS (1)
  1. VENTOLIN HFA [Suspect]
     Active Substance: ALBUTEROL SULFATE
     Indication: EMPHYSEMA
     Dosage: UNK

REACTIONS (6)
  - Disease progression [Unknown]
  - Overdose [Unknown]
  - Ill-defined disorder [Unknown]
  - Mobility decreased [Unknown]
  - Death [Fatal]
  - Emphysema [Unknown]
